FAERS Safety Report 10957806 (Version 2)
Quarter: 2015Q2

REPORT INFORMATION
  Report Type: Spontaneous
  Country: PT (occurrence: PT)
  Receive Date: 20150326
  Receipt Date: 20150428
  Transmission Date: 20150821
  Serious: Yes (Other)
  Sender: FDA-Public Use
  Company Number: PT-009507513-1503PRT011847

PATIENT
  Age: 68 Year
  Sex: Female

DRUGS (11)
  1. OLSAR PLUS [Concomitant]
     Dosage: 12.5/20
  2. OPTRUMA [Concomitant]
     Active Substance: RALOXIFENE HYDROCHLORIDE
  3. LYRICA [Concomitant]
     Active Substance: PREGABALIN
  4. GLUCOMED (GLUCOSAMINE HYDROCHLORIDE) [Concomitant]
     Active Substance: GLUCOSAMINE HYDROCHLORIDE
  5. FOSAVANCE [Suspect]
     Active Substance: ALENDRONATE SODIUM\CHOLECALCIFEROL
     Indication: OSTEOPOROSIS
     Dosage: UNK UNK, QW
     Route: 048
     Dates: start: 201412
  6. MONTELUKAST SODIUM. [Concomitant]
     Active Substance: MONTELUKAST SODIUM
  7. TRIAPIN [Concomitant]
  8. OVESTIN [Concomitant]
     Active Substance: ESTRIOL
  9. LEXOTAN [Concomitant]
     Active Substance: BROMAZEPAM
  10. PROGLUMETACIN [Concomitant]
  11. SIMVASTATIN. [Concomitant]
     Active Substance: SIMVASTATIN

REACTIONS (3)
  - Tooth fracture [Recovered/Resolved]
  - Gingival oedema [Recovered/Resolved]
  - Tooth loss [Recovered/Resolved]

NARRATIVE: CASE EVENT DATE: 20141214
